FAERS Safety Report 4922000-5 (Version None)
Quarter: 2006Q1

REPORT INFORMATION
  Report Type: 
  Country: None (occurrence: None)
  Receive Date: 20060222
  Receipt Date: 20060222
  Transmission Date: 20060701
  Serious: Yes (Other)
  Sender: FDA-Public Use
  Company Number: None

PATIENT
  Age: 87 Year
  Sex: Female
  Weight: 58.0604 kg

DRUGS (13)
  1. AMIODARONE [Suspect]
     Dosage: A LONG TIME
  2. PLAVIX [Concomitant]
  3. METHAZOLAMIDE [Concomitant]
  4. CALTRATE [Concomitant]
  5. M.V.I. [Concomitant]
  6. ALPHAGAN [Concomitant]
  7. PILOCARPINE [Concomitant]
  8. COSOPT [Concomitant]
  9. ZANTAC [Concomitant]
  10. ZOCOR [Concomitant]
  11. LUMIGAN [Concomitant]
  12. FISH OIL [Concomitant]
  13. TYLENOL (CAPLET) [Concomitant]

REACTIONS (3)
  - CARDIAC PACEMAKER INSERTION [None]
  - THERAPY NON-RESPONDER [None]
  - VISUAL DISTURBANCE [None]
